FAERS Safety Report 10638319 (Version 2)
Quarter: 2015Q1

REPORT INFORMATION
  Report Type: Spontaneous
  Country: US (occurrence: US)
  Receive Date: 20141208
  Receipt Date: 20150130
  Transmission Date: 20150720
  Serious: Yes (Hospitalization, Other)
  Sender: FDA-Public Use
  Company Number: US-GLAXOSMITHKLINE-US2014GSK032547

PATIENT
  Age: 54 Year
  Sex: Female

DRUGS (2)
  1. FLOVENT [Suspect]
     Active Substance: FLUTICASONE PROPIONATE
     Indication: ACUTE RESPIRATORY FAILURE
     Dosage: UNK
     Dates: start: 201312
  2. FLOVENT [Suspect]
     Active Substance: FLUTICASONE PROPIONATE
     Indication: ASTHMA

REACTIONS (4)
  - Pulmonary thrombosis [Unknown]
  - Vena cava injury [Unknown]
  - Thrombosis [Unknown]
  - Surgery [Unknown]

NARRATIVE: CASE EVENT DATE: 201408
